FAERS Safety Report 4906834-9 (Version None)
Quarter: 2006Q1

REPORT INFORMATION
  Report Type: 
  Country: None (occurrence: None)
  Receive Date: 20060207
  Receipt Date: 20060127
  Transmission Date: 20060701
  Serious: Yes (Other)
  Sender: FDA-Public Use
  Company Number: 221544

PATIENT
  Age: 72 Year
  Sex: Male
  Weight: 75 kg

DRUGS (10)
  1. RITUXAN (RITUXIMAB) CONC FOR SOLUTION FOR INFUSION [Suspect]
     Indication: LYMPHOMA
     Dosage: 680 MG, UNK, INTRAVENOUS
     Route: 042
     Dates: start: 20050228, end: 20050613
  2. CARBOPLATIN [Suspect]
     Indication: LYMPHOMA
     Dosage: 128 MG, UNK, INTRAVENOUS
     Route: 042
     Dates: start: 20050301, end: 20050615
  3. ETOPOSIDE [Suspect]
     Indication: LYMPHOMA
     Dosage: 102 MG, UNK, INTRAVENOUS
     Route: 042
     Dates: start: 20050301, end: 20050615
  4. METHYLPREDNISOLONE [Suspect]
     Indication: LYMPHOMA
     Dosage: 500 MG, UNK, INTRAVENOUS
     Route: 042
     Dates: start: 20050301, end: 20050615
  5. CYTARABINE [Suspect]
     Indication: LYMPHOMA
     Dosage: 1800 MG, UNK, INTRAVENOUS
     Route: 042
     Dates: start: 20050301, end: 20050615
  6. POLARAMINE [Concomitant]
  7. BRUFEN (IBUPROFEN) [Concomitant]
  8. FAMOTIDINE [Concomitant]
  9. BEZAFIBRATE (BEZAFIBRATE) [Concomitant]
  10. EPADEL (ETHYL ICOSAPENTATE) [Concomitant]

REACTIONS (2)
  - NEUTROPENIA [None]
  - THROMBOCYTOPENIA [None]
